FAERS Safety Report 15661089 (Version 3)
Quarter: 2019Q4

REPORT INFORMATION
  Report Type: Spontaneous
  Country: US (occurrence: US)
  Receive Date: 20181127
  Receipt Date: 20191114
  Transmission Date: 20200122
  Serious: Yes (Hospitalization, Other)
  Sender: FDA-Public Use
  Company Number: US-PFIZER INC-2018483468

PATIENT
  Age: 71 Year
  Sex: Female
  Weight: 86 kg

DRUGS (2)
  1. BOSULIF [Suspect]
     Active Substance: BOSUTINIB MONOHYDRATE
     Indication: CHRONIC MYELOID LEUKAEMIA
     Dosage: 400 MG, 1X/DAY (SHE USUALLY TAKES IT WITH SUPPER AND SHE TOOK IT AT 10PM, SUPPER TIME)
     Route: 048
     Dates: end: 20181113
  2. BOSULIF [Suspect]
     Active Substance: BOSUTINIB MONOHYDRATE
     Dosage: 100 MG, DAILY
     Route: 048

REACTIONS (6)
  - Renal disorder [Unknown]
  - Pericardial effusion [Recovered/Resolved with Sequelae]
  - Diarrhoea [Unknown]
  - Atrial fibrillation [Recovered/Resolved with Sequelae]
  - Vomiting [Unknown]
  - Malaise [Unknown]

NARRATIVE: CASE EVENT DATE: 20181113
